FAERS Safety Report 10376078 (Version 1)
Quarter: 2014Q3

REPORT INFORMATION
  Report Type: Report from Study
  Country: CA (occurrence: CA)
  Receive Date: 20140811
  Receipt Date: 20140811
  Transmission Date: 20150326
  Serious: Yes (Hospitalization)
  Sender: FDA-Public Use
  Company Number: CA-BRISTOL-MYERS SQUIBB COMPANY-21292164

PATIENT
  Age: 67 Year
  Sex: Male

DRUGS (1)
  1. SPRYCEL [Suspect]
     Active Substance: DASATINIB
     Indication: CHRONIC MYELOID LEUKAEMIA
     Dosage: MAY2014?RESTART IN JUN14
     Route: 048
     Dates: start: 20130417, end: 20140616

REACTIONS (4)
  - Diarrhoea haemorrhagic [Unknown]
  - Peripheral arterial occlusive disease [Unknown]
  - Myocardial infarction [Unknown]
  - Pleural effusion [Unknown]

NARRATIVE: CASE EVENT DATE: 201402
